FAERS Safety Report 4530126-3 (Version None)
Quarter: 2004Q4

REPORT INFORMATION
  Report Type: 
  Country: None (occurrence: None)
  Receive Date: 20041217
  Receipt Date: 20041208
  Transmission Date: 20050328
  Serious: Yes (Hospitalization)
  Sender: FDA-Public Use
  Company Number: FR-JNJFOC-20041202474

PATIENT
  Sex: Female

DRUGS (12)
  1. HALDOL [Suspect]
     Indication: DRUG USE FOR UNKNOWN INDICATION
     Route: 049
  2. SERMION [Suspect]
     Indication: DRUG USE FOR UNKNOWN INDICATION
  3. RENITEC [Suspect]
     Indication: DRUG USE FOR UNKNOWN INDICATION
  4. TRIVASTAL [Suspect]
     Indication: DRUG USE FOR UNKNOWN INDICATION
  5. PROPOFAN [Suspect]
  6. PROPOFAN [Suspect]
  7. PROPOFAN [Suspect]
  8. PROPOFAN [Suspect]
  9. PROPOFAN [Suspect]
     Indication: DRUG USE FOR UNKNOWN INDICATION
  10. MONICOR [Concomitant]
  11. PRESTOLE [Concomitant]
  12. PRESTOLE [Concomitant]

REACTIONS (4)
  - ERYTHEMA [None]
  - PEMPHIGOID [None]
  - PRURITUS [None]
  - URTICARIA [None]
